FAERS Safety Report 17375236 (Version 1)
Quarter: 2020Q1

REPORT INFORMATION
  Report Type: Spontaneous
  Country: US (occurrence: US)
  Receive Date: 20200206
  Receipt Date: 20200206
  Transmission Date: 20200409
  Serious: Yes (Death, Hospitalization)
  Sender: FDA-Public Use
  Company Number: US-ALVOGEN-2020-ALVOGEN-102708

PATIENT
  Age: 32 Year
  Sex: Male

DRUGS (2)
  1. BUPROPION. [Suspect]
     Active Substance: BUPROPION
     Indication: SUICIDE ATTEMPT
     Dosage: EXTENDED RELEASE
     Route: 048
  2. ALCOHOL. [Suspect]
     Active Substance: ALCOHOL
     Indication: SUICIDE ATTEMPT
     Route: 048

REACTIONS (7)
  - Overdose [Fatal]
  - Electrocardiogram QRS complex abnormal [Fatal]
  - Completed suicide [Fatal]
  - Seizure [Fatal]
  - Congestive cardiomyopathy [Fatal]
  - Mental impairment [Fatal]
  - Shock [Fatal]
